FAERS Safety Report 21144182 (Version 2)
Quarter: 2022Q3

REPORT INFORMATION
  Report Type: Spontaneous
  Country: FR (occurrence: FR)
  Receive Date: 20220728
  Receipt Date: 20220801
  Transmission Date: 20221026
  Serious: Yes (Death, Other)
  Sender: FDA-Public Use
  Company Number: FR-009507513-2207FRA008255

PATIENT
  Sex: Male

DRUGS (1)
  1. KEYTRUDA [Suspect]
     Active Substance: PEMBROLIZUMAB
     Indication: Lung cancer metastatic
     Dosage: ?FOR 2 OR 3 CYCLES?
     Dates: start: 2018

REACTIONS (3)
  - Malignant neoplasm progression [Fatal]
  - General physical health deterioration [Unknown]
  - Oesophagitis [Unknown]
